FAERS Safety Report 6084275-1 (Version None)
Quarter: 2009Q1

REPORT INFORMATION
  Report Type: 
  Country: None (occurrence: None)
  Receive Date: 20090219
  Receipt Date: 20090213
  Transmission Date: 20090719
  Serious: Yes (Hospitalization)
  Sender: FDA-Public Use
  Company Number: PHHY2009JP04204

PATIENT
  Age: 66 Year
  Sex: Female

DRUGS (17)
  1. VOLTAREN [Suspect]
     Indication: MOUTH ULCERATION
     Dosage: 50 MG, TID
     Route: 054
  2. VOLTAREN [Suspect]
     Indication: PAIN
     Dosage: 25 MG PER DAY
     Route: 054
  3. VOLTAREN [Suspect]
     Dosage: 200 MG
     Route: 054
     Dates: start: 20060301, end: 20060601
  4. VOLTAREN [Suspect]
     Dosage: 200 MG
     Route: 054
     Dates: start: 20060601, end: 20060601
  5. LEVOTHYROXINE SODIUM [Concomitant]
     Route: 048
  6. FUROSE (FUROSEDON) [Concomitant]
     Route: 065
  7. SPIRONOLACTONE [Concomitant]
     Route: 048
  8. ACTINOMYCIN D [Concomitant]
     Route: 042
  9. REBAMIPIDE [Concomitant]
     Route: 048
  10. TROXIPIDE [Concomitant]
     Route: 048
  11. FAMOTIDINE [Concomitant]
     Route: 048
  12. SENNOSIDE [Concomitant]
     Route: 048
  13. LACTULOSE [Concomitant]
     Route: 048
  14. XYLOCAINE [Concomitant]
  15. KENALOG [Concomitant]
  16. DEXALTIN [Concomitant]
  17. ENSURE [Concomitant]

REACTIONS (9)
  - ALTERED STATE OF CONSCIOUSNESS [None]
  - DYSKINESIA [None]
  - HEPATIC FUNCTION ABNORMAL [None]
  - HYPERAMMONAEMIA [None]
  - MOUTH ULCERATION [None]
  - PAIN [None]
  - RENAL IMPAIRMENT [None]
  - TONGUE ULCERATION [None]
  - WOUND DEHISCENCE [None]
